FAERS Safety Report 6140483-2 (Version None)
Quarter: 2009Q2

REPORT INFORMATION
  Report Type: 
  Country: None (occurrence: None)
  Receive Date: 20090401
  Receipt Date: 20090320
  Transmission Date: 20091009
  Serious: Yes (Life-Threatening, Other)
  Sender: FDA-Public Use
  Company Number: US-PFIZER INC-2009188414

PATIENT
  Sex: Female

DRUGS (11)
  1. CELEBREX [Suspect]
     Indication: LYMPHANGIOMA
     Dosage: 200 MG, 2X/DAY
     Route: 048
     Dates: start: 20080703, end: 20090107
  2. CELEBREX [Suspect]
     Dosage: 200MG
     Route: 048
     Dates: start: 20090101
  3. ETOPOSIDE [Suspect]
     Indication: LYMPHANGIOMA
     Dosage: 2 MCI, 1X/DAY
     Route: 048
     Dates: start: 20080703, end: 20090107
  4. ETOPOSIDE [Suspect]
     Dosage: 2 MCI, 1X/DAY
     Route: 048
     Dates: start: 20090101
  5. CYCLOPHOSPHAMIDE [Suspect]
     Indication: LYMPHANGIOMA
     Route: 048
  6. THALOMID [Suspect]
     Indication: LYMPHANGIOMA
     Dosage: 100 MG, 1X/DAY
     Route: 048
     Dates: start: 20080703, end: 20090107
  7. THALOMID [Suspect]
     Dosage: 100 MG, 1X/DAY
     Route: 048
     Dates: start: 20090101
  8. FENOFIBRATE [Suspect]
     Indication: LYMPHANGIOMA
     Dosage: 67 MG, 1X/DAY
     Route: 048
     Dates: start: 20080703, end: 20090107
  9. FENOFIBRATE [Suspect]
     Dosage: 50% REDUCED DOSE
     Route: 048
     Dates: start: 20090101
  10. BACTRIM [Concomitant]
     Dosage: 1TSP (BID, M, T, W)
     Route: 048
  11. MIRALAX [Concomitant]
     Dosage: 1/2 CUP FULL(QOD)
     Route: 048

REACTIONS (5)
  - ALANINE AMINOTRANSFERASE INCREASED [None]
  - ASPARTATE AMINOTRANSFERASE INCREASED [None]
  - LYMPHOPENIA [None]
  - NEUTROPHIL COUNT DECREASED [None]
  - WHITE BLOOD CELL COUNT DECREASED [None]
